FAERS Safety Report 9149235 (Version 2)
Quarter: 2013Q1

REPORT INFORMATION
  Report Type: Spontaneous
  Country: US (occurrence: None)
  Receive Date: 20130304
  Receipt Date: 20130325
  Transmission Date: 20140127
  Serious: Yes (Death)
  Sender: FDA-Public Use
  Company Number: 1302-254

PATIENT
  Age: 80 Year
  Sex: Female

DRUGS (10)
  1. EYLEA (AFLIBERCEPT) (INJECTION) (AFLIBERCEPT) [Suspect]
     Indication: MACULAR DEGENERATION
     Dosage: 1 IN 1 M?
     Dates: start: 20120718
  2. METFORMIN (METFORMIN) [Concomitant]
  3. CRESTOR (ROSUVASTATIN CALCIUM) [Concomitant]
  4. OMEPRAZOLE (OMEPRAZOLE) [Concomitant]
  5. CITALOPRAM (CITALOPRAM) [Concomitant]
  6. LEVOTHYROXINE (LEVOTHYROXINE) [Concomitant]
  7. WARFARIN (WARFARIN) [Concomitant]
  8. VITAMIN B-12 (CYANOCOBALAMIN) [Concomitant]
  9. OMEGA 3 (FISH OIL) [Concomitant]
  10. TYLENOL (PARACETAMOL) [Concomitant]

REACTIONS (1)
  - Death [None]
